FAERS Safety Report 8237990-5 (Version None)
Quarter: 2012Q1

REPORT INFORMATION
  Report Type: 
  Country: None (occurrence: None)
  Receive Date: 20120327
  Receipt Date: 20120322
  Transmission Date: 20120608
  Serious: Yes (Other)
  Sender: FDA-Public Use
  Company Number: ES-MERCK-1203ESP00049

PATIENT
  Age: 5 Year
  Sex: Male

DRUGS (1)
  1. SINGULAIR [Suspect]
     Indication: ASTHMA
     Route: 048
     Dates: start: 20110101, end: 20110201

REACTIONS (4)
  - AGGRESSION [None]
  - SLEEP DISORDER [None]
  - IRRITABILITY [None]
  - DISTURBANCE IN ATTENTION [None]
